FAERS Safety Report 8533308-9 (Version None)
Quarter: 2012Q2

REPORT INFORMATION
  Report Type: 
  Country: None (occurrence: None)
  Receive Date: 20120412
  Receipt Date: 20120127
  Transmission Date: 20120825
  Serious: Yes (Other)
  Sender: FDA-Public Use
  Company Number: 2012S1000004

PATIENT
  Age: 62 Year
  Sex: Male
  Weight: 111.5849 kg

DRUGS (13)
  1. KRYSTEXXA [Suspect]
     Indication: GOUT
     Dosage: 8 MG;QOM;IV 8 MG;QM;IV QM;IV 8 MG;QM;IV
     Route: 042
     Dates: start: 20110121, end: 20110901
  2. KRYSTEXXA [Suspect]
     Indication: GOUT
     Dosage: 8 MG;QOM;IV 8 MG;QM;IV QM;IV 8 MG;QM;IV
     Route: 042
     Dates: start: 20110901, end: 20111101
  3. KRYSTEXXA [Suspect]
     Indication: GOUT
     Dosage: 8 MG;QOM;IV 8 MG;QM;IV QM;IV 8 MG;QM;IV
     Route: 042
     Dates: start: 20111223, end: 20111223
  4. KRYSTEXXA [Suspect]
     Indication: GOUT
     Dosage: 8 MG;QOM;IV 8 MG;QM;IV QM;IV 8 MG;QM;IV
     Route: 042
     Dates: start: 20120127, end: 20120127
  5. URSODIOL [Concomitant]
  6. NEXIUM /01479303/ [Concomitant]
  7. DOXAZOSIN MESYLATE [Concomitant]
  8. CALCIUM [Concomitant]
  9. OXYCODONE HCL [Concomitant]
  10. PROGRAF [Concomitant]
  11. CARVEDILOL [Concomitant]
  12. INSULIN [Concomitant]
  13. MAGNESIUM SULFATE [Concomitant]

REACTIONS (3)
  - THERAPEUTIC RESPONSE DECREASED [None]
  - DYSPEPSIA [None]
  - INFUSION RELATED REACTION [None]
